FAERS Safety Report 11381983 (Version 1)
Quarter: 2015Q3

REPORT INFORMATION
  Report Type: Spontaneous
  Country: US (occurrence: US)
  Receive Date: 20150811
  Receipt Date: 20150811
  Transmission Date: 20151125
  Serious: No
  Sender: FDA-Public Use
  Company Number: US-ELI_LILLY_AND_COMPANY-US200908003645

PATIENT
  Sex: Male

DRUGS (7)
  1. FLOMAX [Concomitant]
     Active Substance: TAMSULOSIN HYDROCHLORIDE
     Dosage: UNK, UNKNOWN
     Route: 065
  2. ANTIFUNGALS FOR TOPICAL USE [Concomitant]
     Dosage: UNK, UNKNOWN
     Route: 065
  3. CIALIS [Suspect]
     Active Substance: TADALAFIL
     Dosage: 2.5 MG, OTHER
     Route: 065
     Dates: start: 200905
  4. CIALIS [Suspect]
     Active Substance: TADALAFIL
     Dosage: 5 MG, UNKNOWN
     Route: 065
     Dates: start: 2009
  5. DYCLONINE [Concomitant]
     Active Substance: DYCLONINE
     Dosage: UNK, UNKNOWN
     Route: 065
  6. CIALIS [Suspect]
     Active Substance: TADALAFIL
     Dosage: 10 MG, UNKNOWN
     Route: 065
     Dates: start: 2009
  7. BENZETHONIUM [Concomitant]
     Dosage: UNK, UNKNOWN
     Route: 065

REACTIONS (3)
  - Incorrect dose administered [Unknown]
  - Feeling jittery [Recovered/Resolved]
  - Drug ineffective [Unknown]
